FAERS Safety Report 10256582 (Version 1)
Quarter: 2014Q2

REPORT INFORMATION
  Report Type: Spontaneous
  Country: AU (occurrence: AU)
  Receive Date: 20140624
  Receipt Date: 20140624
  Transmission Date: 20141212
  Serious: Yes (Hospitalization, Other)
  Sender: FDA-Public Use
  Company Number: PHHY2014AU074128

PATIENT
  Age: 82 Year
  Sex: Male

DRUGS (7)
  1. RIFAMPICIN [Suspect]
     Indication: TUBERCULOSIS
     Dosage: 4 MG, UNK
  2. WARFARIN [Interacting]
     Indication: PROPHYLAXIS
     Dosage: 4 MG, DU
  3. WARFARIN [Interacting]
     Indication: ATRIAL FIBRILLATION
     Dosage: 12 MG, DU
  4. WARFARIN [Interacting]
     Dosage: 4 MG, DU
  5. ISONIAZID [Concomitant]
     Indication: TUBERCULOSIS
  6. PYRAZINAMIDE [Concomitant]
     Indication: TUBERCULOSIS
  7. ETHAMBUTOL [Concomitant]
     Indication: TUBERCULOSIS

REACTIONS (14)
  - Anaemia [Recovering/Resolving]
  - Haemoglobin decreased [Recovering/Resolving]
  - Coagulation time prolonged [Unknown]
  - International normalised ratio increased [Unknown]
  - Activated partial thromboplastin time prolonged [Unknown]
  - Prothrombin time prolonged [Unknown]
  - Muscle haemorrhage [Unknown]
  - Contusion [Unknown]
  - Lethargy [Unknown]
  - Dizziness [Unknown]
  - Abdominal pain [Unknown]
  - Back pain [Unknown]
  - Drug interaction [Unknown]
  - Fall [Unknown]
